FAERS Safety Report 4991076-1 (Version None)
Quarter: 2006Q2

REPORT INFORMATION
  Report Type: 
  Country: None (occurrence: None)
  Receive Date: 20060428
  Receipt Date: 20060419
  Transmission Date: 20061013
  Serious: Yes (Disabling)
  Sender: FDA-Public Use
  Company Number: 2003103618

PATIENT
  Age: 49 Year
  Sex: Female

DRUGS (1)
  1. VISINE-A [Suspect]
     Indication: ERYTHEMA
     Dosage: 3 DROPS OU,QD OPHTHALMIC
     Route: 047
     Dates: start: 20030502, end: 20030510

REACTIONS (10)
  - CORNEAL ABRASION [None]
  - CORNEAL OPACITY [None]
  - CORNEAL SCAR [None]
  - CORRECTIVE LENS USER [None]
  - EYE PRURITUS [None]
  - HEADACHE [None]
  - PHARMACEUTICAL PRODUCT COMPLAINT [None]
  - SKIN LACERATION [None]
  - SUPERFICIAL INJURY OF EYE [None]
  - ULCERATIVE KERATITIS [None]
